FAERS Safety Report 23130530 (Version 1)
Quarter: 2023Q4

REPORT INFORMATION
  Report Type: Spontaneous
  Country: ES (occurrence: ES)
  Receive Date: 20231031
  Receipt Date: 20231031
  Transmission Date: 20240109
  Serious: Yes (Other)
  Sender: FDA-Public Use
  Company Number: ES-AEMPS-1440238

PATIENT
  Age: 53 Year
  Sex: Male

DRUGS (4)
  1. CEFUROXIME [Suspect]
     Active Substance: CEFUROXIME
     Indication: Prostatitis
     Dosage: 500 MILLIGRAM, TWO TIMES A DAY
     Route: 048
     Dates: start: 20230831, end: 20230915
  2. IBUPROFEN [Concomitant]
     Active Substance: IBUPROFEN
     Indication: Prostatitis
     Dosage: 400 MILLIGRAM, (1 AS NECESSARY) (400 MG/8 H IF FEVER PAIN OR DISCOMFORT)
     Route: 048
     Dates: start: 20230831, end: 20230907
  3. METAMIZOLE [Concomitant]
     Active Substance: METAMIZOLE
     Indication: Prostatitis
     Dosage: 575 MILLIGRAM, AS NECESSARY (575/8H IF FEVER, PAIN OR DISCOMFORT)
     Route: 048
     Dates: start: 20230831, end: 20230907
  4. ACETAMINOPHEN [Concomitant]
     Active Substance: ACETAMINOPHEN
     Indication: Prostatitis
     Dosage: 650 MILLIGRAM, AS NECESSARY (650 MG/8H IF FEVER, PAIN OR DISCOMFORT)
     Route: 048
     Dates: start: 20230831, end: 20230907

REACTIONS (1)
  - Hepatic cytolysis [Recovered/Resolved]

NARRATIVE: CASE EVENT DATE: 20230912
